FAERS Safety Report 10245079 (Version 1)
Quarter: 2014Q2

REPORT INFORMATION
  Report Type: Spontaneous
  Country: GB (occurrence: GB)
  Receive Date: 20140618
  Receipt Date: 20140618
  Transmission Date: 20141212
  Serious: Yes (Hospitalization)
  Sender: FDA-Public Use
  Company Number: GB-TEVA-465989ISR

PATIENT
  Age: 58 Year
  Sex: Male
  Weight: 78.2 kg

DRUGS (9)
  1. CISPLATIN [Suspect]
     Indication: GASTRIC CANCER
     Dosage: DATE OF LAST DOSE PRIOR TO SAE 25/MAR/2013
     Route: 042
     Dates: start: 20120914
  2. EPIRUBICIN [Suspect]
     Indication: GASTRIC CANCER
     Dosage: DATE OF LAST DOSE PRIOR TO SAE 25/MAR/2013
     Route: 042
     Dates: start: 20120914
  3. AVASTIN [Suspect]
     Indication: GASTRIC CANCER
     Dosage: DATE OF LAST DOSE PRIOR TO SAE 25/MAR/2013
     Route: 042
     Dates: start: 20120914
  4. XELODA [Suspect]
     Indication: GASTRIC CANCER
     Dosage: DATE OF LAST DOSE PRIOR TO SAE 25/MAR/2013
     Route: 048
     Dates: start: 20120914
  5. CITALOPRAM [Concomitant]
     Route: 065
     Dates: start: 2009
  6. LISINOPRIL [Concomitant]
     Route: 065
     Dates: start: 20120904
  7. OMEPRAZOLE [Concomitant]
     Route: 065
     Dates: start: 20120709
  8. PROCHLORPERAZINE [Concomitant]
     Route: 065
  9. THIAMIN [Concomitant]
     Route: 065
     Dates: start: 20120709

REACTIONS (2)
  - Neutrophil count decreased [Recovered/Resolved]
  - Haematemesis [Recovered/Resolved]
